FAERS Safety Report 14108582 (Version 1)
Quarter: 2017Q4

REPORT INFORMATION
  Report Type: Spontaneous
  Country: US (occurrence: US)
  Receive Date: 20171019
  Receipt Date: 20171019
  Transmission Date: 20180321
  Serious: Yes (Hospitalization)
  Sender: FDA-Public Use
  Company Number: US-MYLANLABS-2017M1065178

PATIENT
  Age: 48 Year
  Sex: Male

DRUGS (2)
  1. BUPIVACAINE. [Suspect]
     Active Substance: BUPIVACAINE
     Indication: BACK PAIN
     Dosage: 4 ML OF 0.25% OUT OF 6ML OF INJECTION
     Route: 008
  2. BETAMETHASONE. [Suspect]
     Active Substance: BETAMETHASONE
     Indication: BACK PAIN
     Dosage: 2ML (6 MG/ML) OUT OF 6ML INJECTION
     Route: 008

REACTIONS (2)
  - Arteriovenous fistula [Recovering/Resolving]
  - Paraparesis [Recovering/Resolving]
